FAERS Safety Report 4427874-2 (Version None)
Quarter: 2004Q3

REPORT INFORMATION
  Report Type: 
  Country: None (occurrence: None)
  Receive Date: 20040813
  Receipt Date: 20040730
  Transmission Date: 20050211
  Serious: Yes (Death)
  Sender: FDA-Public Use
  Company Number: A0521206A

PATIENT
  Age: 54 Year
  Sex: Male

DRUGS (4)
  1. PAXIL [Suspect]
     Indication: DEPRESSION
     Dosage: 25 MG/PER DAY/ORAL
     Route: 048
     Dates: start: 20030617
  2. FLUTICASONE + SALMETEROL [Concomitant]
  3. EXCEDRIN (MIGRAINE) [Concomitant]
  4. IBUPROFEN [Concomitant]

REACTIONS (3)
  - COMPLETED SUICIDE [None]
  - GUN SHOT WOUND [None]
  - HEAD INJURY [None]
